FAERS Safety Report 5562996-4 (Version None)
Quarter: 2007Q4

REPORT INFORMATION
  Report Type: 
  Country: None (occurrence: None)
  Receive Date: 20071217
  Receipt Date: 20071205
  Transmission Date: 20080405
  Serious: Yes (Hospitalization)
  Sender: FDA-Public Use
  Company Number: JP-ROCHE-531969

PATIENT
  Sex: Male

DRUGS (2)
  1. COPEGUS [Suspect]
     Route: 048
  2. PEGASYS [Suspect]
     Route: 058

REACTIONS (1)
  - SUBDURAL HAEMATOMA [None]
